FAERS Safety Report 4685002-2 (Version None)
Quarter: 2005Q2

REPORT INFORMATION
  Report Type: 
  Country: None (occurrence: None)
  Receive Date: 20050608
  Receipt Date: 20050527
  Transmission Date: 20051028
  Serious: Yes (Hospitalization)
  Sender: FDA-Public Use
  Company Number: JP-JNJFOC-20041102362

PATIENT
  Sex: Female
  Weight: 42 kg

DRUGS (8)
  1. REMICADE [Suspect]
     Indication: RHEUMATOID ARTHRITIS
     Route: 042
  2. METHOTREXATE [Suspect]
     Route: 049
  3. PREDONINE [Suspect]
     Indication: RHEUMATOID ARTHRITIS
     Route: 049
  4. LOXONIN [Concomitant]
     Indication: RHEUMATOID ARTHRITIS
     Route: 049
  5. FOLIAMIN [Concomitant]
     Route: 049
  6. BENET [Concomitant]
     Route: 049
  7. ALFAROL [Concomitant]
     Route: 049
  8. MUCOSTA [Concomitant]
     Route: 049

REACTIONS (2)
  - DRUG INTERACTION [None]
  - PNEUMOCYSTIS JIROVECI PNEUMONIA [None]
